FAERS Safety Report 13954443 (Version 1)
Quarter: 2017Q3

REPORT INFORMATION
  Report Type: Spontaneous
  Country: US (occurrence: US)
  Receive Date: 20170909
  Receipt Date: 20170909
  Transmission Date: 20171128
  Serious: Yes (Other)
  Sender: FDA-Public Use
  Company Number: None

PATIENT
  Sex: Female
  Weight: 65.7 kg

DRUGS (4)
  1. MULTIVITAMIN [Concomitant]
     Active Substance: VITAMINS
  2. LISINOPRIL. [Suspect]
     Active Substance: LISINOPRIL
     Indication: HYPERTENSION
     Dosage: ?          QUANTITY:1 TABLET(S); DAILY ORAL?
     Route: 048
     Dates: start: 20170902, end: 20170909
  3. SYNTHROID [Concomitant]
     Active Substance: LEVOTHYROXINE SODIUM
  4. FEMARA [Concomitant]
     Active Substance: LETROZOLE

REACTIONS (3)
  - Hypertension [None]
  - Vertigo [None]
  - Drug ineffective [None]

NARRATIVE: CASE EVENT DATE: 20170909
